FAERS Safety Report 6213129-2 (Version None)
Quarter: 2009Q2

REPORT INFORMATION
  Report Type: 
  Country: None (occurrence: None)
  Receive Date: 20090528
  Receipt Date: 20090211
  Transmission Date: 20091009
  Serious: Yes (Hospitalization)
  Sender: FDA-Public Use
  Company Number: 2009-RO-00142RO

PATIENT
  Age: 40 Year
  Sex: Male

DRUGS (2)
  1. PREDNISONE TAB [Suspect]
     Indication: RENAL TRANSPLANT
     Dosage: 7.5 MG
     Dates: start: 20070319
  2. BELATACEPT (BELATACEPT) (VERUM) [Suspect]
     Indication: RENAL TRANSPLANT
     Dosage: IV
     Route: 042
     Dates: start: 20070124

REACTIONS (1)
  - POSTOPERATIVE WOUND INFECTION [None]
